FAERS Safety Report 12581247 (Version 2)
Quarter: 2017Q2

REPORT INFORMATION
  Report Type: Report from Study
  Country: TW (occurrence: TW)
  Receive Date: 20160721
  Receipt Date: 20170411
  Transmission Date: 20170830
  Serious: Yes (Hospitalization)
  Sender: FDA-Public Use
  Company Number: US-ASTRAZENECA-2013SE31136

PATIENT
  Age: 21407 Day
  Sex: Female
  Weight: 51 kg

DRUGS (1)
  1. BYDUREON [Suspect]
     Active Substance: EXENATIDE
     Indication: TYPE 2 DIABETES MELLITUS
     Dosage: UNK
     Route: 058
     Dates: start: 20120420

REACTIONS (1)
  - Lip neoplasm [Recovered/Resolved]

NARRATIVE: CASE EVENT DATE: 20130417
